FAERS Safety Report 11130585 (Version 1)
Quarter: 2015Q2

REPORT INFORMATION
  Report Type: Report from Study
  Country: US (occurrence: US)
  Receive Date: 20150522
  Receipt Date: 20150522
  Transmission Date: 20150821
  Serious: Yes (Hospitalization)
  Sender: FDA-Public Use
  Company Number: US-BAYER-2015-012505

PATIENT
  Age: 76 Year
  Sex: Male

DRUGS (4)
  1. ADEMPAS [Suspect]
     Active Substance: RIOCIGUAT
     Indication: PULMONARY HYPERTENSION
     Dosage: 0.5 MG, TID
     Route: 048
     Dates: start: 20141231
  2. NORVASC [Concomitant]
     Active Substance: AMLODIPINE BESYLATE
  3. ADEMPAS [Suspect]
     Active Substance: RIOCIGUAT
     Indication: PULMONARY HYPERTENSION
     Dosage: 0.5 MG, TID
     Route: 048
     Dates: start: 20150303
  4. ADEMPAS [Suspect]
     Active Substance: RIOCIGUAT
     Indication: PULMONARY HYPERTENSION
     Dosage: 0.25 MG, TID
     Route: 048
     Dates: end: 20150220

REACTIONS (8)
  - Dizziness [None]
  - Blood potassium decreased [None]
  - Hypotension [Recovered/Resolved]
  - Acute kidney injury [None]
  - Creatinine renal clearance decreased [None]
  - Polyuria [None]
  - Headache [Unknown]
  - Glomerular filtration rate decreased [None]

NARRATIVE: CASE EVENT DATE: 201502
